FAERS Safety Report 25057737 (Version 3)
Quarter: 2025Q2

REPORT INFORMATION
  Report Type: Report from Study
  Country: BE (occurrence: BE)
  Receive Date: 20250310
  Receipt Date: 20250407
  Transmission Date: 20250716
  Serious: Yes (Life-Threatening, Other)
  Sender: EXELIXIS
  Company Number: BE-IPSEN Group, Research and Development-2025-05129

PATIENT

DRUGS (10)
  1. CABOZANTINIB [Suspect]
     Active Substance: CABOZANTINIB
     Indication: Renal cell carcinoma
     Dosage: 40 MG, QD
     Route: 065
     Dates: start: 20250109, end: 20250327
  2. NIVOLUMAB [Concomitant]
     Active Substance: NIVOLUMAB
     Dates: start: 20250109
  3. NIVOLUMAB [Concomitant]
     Active Substance: NIVOLUMAB
     Dates: start: 20250130
  4. NIVOLUMAB [Concomitant]
     Active Substance: NIVOLUMAB
     Dates: start: 20250213
  5. NIVOLUMAB [Concomitant]
     Active Substance: NIVOLUMAB
     Dates: start: 20250227
  6. NIVOLUMAB [Concomitant]
     Active Substance: NIVOLUMAB
     Dates: start: 20250313
  7. NIVOLUMAB [Concomitant]
     Active Substance: NIVOLUMAB
     Dates: start: 20250327
  8. BETAMETHASONE DIPROPIONATE [Concomitant]
     Active Substance: BETAMETHASONE DIPROPIONATE
     Indication: Toxic skin eruption
     Dosage: 1 APPLICATION
     Route: 061
     Dates: start: 20250123, end: 20250206
  9. BETAMETHASONE DIPROPIONATE [Concomitant]
     Active Substance: BETAMETHASONE DIPROPIONATE
     Dosage: 1 APPLICATION
     Route: 061
     Dates: start: 20250207, end: 20250221
  10. BETAMETHASONE DIPROPIONATE [Concomitant]
     Active Substance: BETAMETHASONE DIPROPIONATE
     Route: 061
     Dates: start: 20250222

REACTIONS (7)
  - Hepatotoxicity [Not Recovered/Not Resolved]
  - Toxic skin eruption [Not Recovered/Not Resolved]
  - Oral fungal infection [Recovered/Resolved]
  - Dysgeusia [Not Recovered/Not Resolved]
  - Decreased appetite [Not Recovered/Not Resolved]
  - Dysphonia [Not Recovered/Not Resolved]
  - Fatigue [Not Recovered/Not Resolved]

NARRATIVE: CASE EVENT DATE: 20250123
